FAERS Safety Report 9682440 (Version 3)
Quarter: 2014Q2

REPORT INFORMATION
  Report Type: Report from Study
  Country: GB (occurrence: GB)
  Receive Date: 20131112
  Receipt Date: 20140604
  Transmission Date: 20141212
  Serious: Yes (Other)
  Sender: FDA-Public Use
  Company Number: GB-009507513-1008USA03517

PATIENT
  Age: 72 Year
  Sex: Male
  Weight: 81 kg

DRUGS (8)
  1. SIMVASTATIN [Suspect]
     Indication: ACUTE CORONARY SYNDROME
     Dosage: 40 MG, QD
     Route: 048
     Dates: start: 20080104, end: 20100725
  2. CANDESARTAN [Concomitant]
     Dosage: TOTAL DAILY DOSE 8 MG
     Route: 048
     Dates: start: 20060701
  3. ACETAMINOPHEN [Concomitant]
     Dosage: TOTAL DAILY DOSE 500 MG
     Route: 048
     Dates: start: 20080901
  4. BISOPROLOL [Concomitant]
     Dosage: TOTAL DAILY DOSE 5 MG
     Route: 048
     Dates: start: 20080101
  5. ASPIRIN [Concomitant]
     Dosage: TOTAL DAILY DOSE 75 MG
     Route: 048
     Dates: start: 19990601
  6. LANSOPRAZOLE [Concomitant]
     Dosage: TOTAL DAILY DOSE 15 MG
     Route: 048
     Dates: start: 20071201
  7. ACETAMINOPHEN (+) DIHYDROCODEINE BITARTRATE [Concomitant]
     Dosage: TOTAL DAILY DOSE 10+500 MG
     Route: 048
     Dates: start: 20080801
  8. IMDUR [Concomitant]
     Dosage: TOTAL DAILY DOSE 60 MG
     Route: 048
     Dates: start: 20071101

REACTIONS (1)
  - Prostate cancer [Not Recovered/Not Resolved]
